FAERS Safety Report 10371000 (Version 1)
Quarter: 2014Q3

REPORT INFORMATION
  Report Type: Spontaneous
  Country: US (occurrence: None)
  Receive Date: 20140807
  Receipt Date: 20140807
  Transmission Date: 20150326
  Serious: Yes (Hospitalization)
  Sender: FDA-Public Use
  Company Number: None

PATIENT
  Age: 57 Year
  Sex: Female
  Weight: 81.5 kg

DRUGS (5)
  1. NOVOLOG [Concomitant]
     Active Substance: INSULIN ASPART
  2. GLUCAGON. [Concomitant]
     Active Substance: GLUCAGON
  3. LEVEMIR [Concomitant]
     Active Substance: INSULIN DETEMIR
  4. LEVEMIR [Suspect]
     Active Substance: INSULIN DETEMIR
     Indication: DIABETES MELLITUS
     Dosage: 30 UNITS QD SUBCUTANEOUS
     Route: 058
  5. DEXTROSE. [Concomitant]
     Active Substance: DEXTROSE

REACTIONS (5)
  - Injection site erythema [None]
  - Suicide attempt [None]
  - Intentional overdose [None]
  - Hypoglycaemia [None]
  - Injection site swelling [None]

NARRATIVE: CASE EVENT DATE: 20140721
